FAERS Safety Report 9588229 (Version 1)
Quarter: 2013Q4

REPORT INFORMATION
  Report Type: Spontaneous
  Country: US (occurrence: US)
  Receive Date: 20131003
  Receipt Date: 20131003
  Transmission Date: 20140711
  Serious: No
  Sender: FDA-Public Use
  Company Number: US-AMGEN-USASP2012063353

PATIENT
  Sex: Female

DRUGS (6)
  1. ENBREL [Suspect]
     Indication: RHEUMATOID ARTHRITIS
     Dosage: 25 MG, 2 TIMES/WK
     Route: 058
  2. AMLODIPIN                          /00972401/ [Concomitant]
     Dosage: 5 MG, UNK
  3. VITAMIN D [Concomitant]
     Dosage: 10000 IU, UNK
  4. PRILOSEC                           /00661201/ [Concomitant]
     Dosage: 10 MG, UNK
  5. MOBIC [Concomitant]
     Dosage: 7.5 MG, UNK
  6. ZYRTEC [Concomitant]
     Dosage: 10 MG, UNK

REACTIONS (1)
  - Therapeutic response decreased [Unknown]
